FAERS Safety Report 5304725-5 (Version None)
Quarter: 2007Q2

REPORT INFORMATION
  Report Type: 
  Country: None (occurrence: None)
  Receive Date: 20070423
  Receipt Date: 20061211
  Transmission Date: 20071010
  Serious: Yes (Death, Hospitalization)
  Sender: FDA-Public Use
  Company Number: FR-BRISTOL-MYERS SQUIBB COMPANY-13608781

PATIENT
  Age: 92 Year
  Sex: Female
  Weight: 56 kg

DRUGS (6)
  1. PRAVADUAL TABS 81 MG/40 MG [Suspect]
     Indication: ARTERITIS
     Dosage: DOSAGE: 40 MG/81 MG TABLET BY MOUTH.
     Route: 048
     Dates: end: 20061019
  2. LASIX [Concomitant]
  3. DETENSIEL [Concomitant]
  4. SERESTA [Concomitant]
  5. IKOREL [Concomitant]
  6. PYOSTACINE [Concomitant]
     Dates: start: 20061012

REACTIONS (2)
  - ARTERIAL DISORDER [None]
  - GASTROINTESTINAL HAEMORRHAGE [None]
